FAERS Safety Report 23033258 (Version 2)
Quarter: 2025Q4

REPORT INFORMATION
  Report Type: Report from Study
  Country: US (occurrence: US)
  Receive Date: 20231005
  Receipt Date: 20251023
  Transmission Date: 20260117
  Serious: Yes (Other)
  Sender: AMGEN
  Company Number: US-AMGEN-USASP2023174586

PATIENT
  Age: 46 Year
  Sex: Female

DRUGS (1)
  1. TAVNEOS [Suspect]
     Active Substance: AVACOPAN
     Indication: Microscopic polyangiitis
     Dosage: 3 DOSAGE FORM, BID
     Route: 065
     Dates: start: 20220829, end: 20230808

REACTIONS (1)
  - Cervix carcinoma [Unknown]
